FAERS Safety Report 5607751-1 (Version None)
Quarter: 2008Q1

REPORT INFORMATION
  Report Type: 
  Country: None (occurrence: None)
  Receive Date: 20080130
  Receipt Date: 20080124
  Transmission Date: 20080703
  Serious: Yes (Other)
  Sender: FDA-Public Use
  Company Number: US-JNJFOC-20080106536

PATIENT
  Age: 43 Year
  Sex: Female
  Weight: 58.97 kg

DRUGS (5)
  1. LEVAQUIN [Suspect]
     Indication: SINUSITIS
     Route: 048
  2. LEVAQUIN [Suspect]
     Indication: LABYRINTHITIS
     Route: 048
  3. LIQUIBID-D [Concomitant]
     Indication: EAR DISORDER
     Route: 048
  4. MUCINEX [Concomitant]
     Route: 048
  5. PRONESTYL [Concomitant]
     Indication: ASTHMA
     Route: 055

REACTIONS (3)
  - ASTHMA [None]
  - DYSPEPSIA [None]
  - GASTROOESOPHAGEAL REFLUX DISEASE [None]
